FAERS Safety Report 8978178 (Version 1)
Quarter: 2012Q4

REPORT INFORMATION
  Report Type: 
  Country: US (occurrence: US)
  Receive Date: 20121221
  Receipt Date: 20121221
  Transmission Date: 20130627
  Serious: Yes (Hospitalization)
  Sender: FDA-Public Use
  Company Number: US-AMGEN-USASP2012081588

PATIENT
  Age: 55 Year
  Sex: Female

DRUGS (3)
  1. ENBREL [Suspect]
     Indication: RHEUMATOID ARTHRITIS
     Dosage: 50 mg, UNK
     Dates: start: 20100101
  2. PLAQUENIL                          /00072602/ [Concomitant]
     Dosage: 200 mg, bid
     Dates: start: 2010
  3. METHOTREXATE [Concomitant]
     Dosage: 0.6 ml mg, qwk
     Dates: start: 2010

REACTIONS (9)
  - Arthritis [Not Recovered/Not Resolved]
  - Transient ischaemic attack [Recovered/Resolved]
  - Lymphadenopathy [Not Recovered/Not Resolved]
  - Arthralgia [Not Recovered/Not Resolved]
  - Pain [Not Recovered/Not Resolved]
  - Pain in extremity [Not Recovered/Not Resolved]
  - Musculoskeletal stiffness [Not Recovered/Not Resolved]
  - Insomnia [Not Recovered/Not Resolved]
  - Visual impairment [Not Recovered/Not Resolved]
